FAERS Safety Report 7347846-8 (Version None)
Quarter: 2011Q1

REPORT INFORMATION
  Report Type: 
  Country: None (occurrence: None)
  Receive Date: 20110311
  Receipt Date: 20110301
  Transmission Date: 20110831
  Serious: Yes (Death, Hospitalization)
  Sender: FDA-Public Use
  Company Number: GB-JNJFOC-20100502761

PATIENT
  Sex: Male

DRUGS (10)
  1. ERLOTINIB [Concomitant]
     Indication: ILL-DEFINED DISORDER
     Route: 065
  2. ALL OTHER THERAPEUTIC PRODUCTS [Concomitant]
  3. IBUPROFEN [Suspect]
     Indication: PRODUCT USED FOR UNKNOWN INDICATION
     Route: 048
  4. AMIAS [Suspect]
     Indication: ILL-DEFINED DISORDER
     Route: 048
  5. POTASSIUM [Concomitant]
     Route: 048
  6. RADIOTHERAPY [Concomitant]
     Indication: ILL-DEFINED DISORDER
     Dosage: 5 FRACTIONS COMPLETED
  7. ADALAT [Concomitant]
     Indication: ILL-DEFINED DISORDER
     Route: 048
  8. SIMVASTATIN [Concomitant]
     Indication: ILL-DEFINED DISORDER
     Route: 048
  9. DALTEPARIN SODIUM [Suspect]
     Indication: LUNG NEOPLASM MALIGNANT
     Route: 065
  10. PARACETAMOL [Concomitant]
     Indication: ILL-DEFINED DISORDER
     Route: 048

REACTIONS (3)
  - LUNG NEOPLASM MALIGNANT [None]
  - RENAL FAILURE [None]
  - PLEURAL EFFUSION [None]
